FAERS Safety Report 7085222-6 (Version None)
Quarter: 2010Q4

REPORT INFORMATION
  Report Type: 
  Country: None (occurrence: None)
  Receive Date: 20101027
  Receipt Date: 20101013
  Transmission Date: 20110411
  Serious: Yes (Death)
  Sender: FDA-Public Use
  Company Number: 011433

PATIENT

DRUGS (10)
  1. BUSULFEX [Suspect]
     Indication: BONE MARROW CONDITIONING REGIMEN
     Dosage: 8 MG/KG,; 16 MG/KG,
  2. CYCLOPHOSPHAMIDE [Concomitant]
  3. ETOPOSIDE [Concomitant]
  4. FLUDARABINE PHOSPHATE [Concomitant]
  5. CYTARABINE [Concomitant]
  6. AMSACRINE (AMSACRINE) [Concomitant]
  7. ANTI-THYMOCYTE GLOBULIN NOS [Concomitant]
  8. CYCLOSPORINE [Concomitant]
  9. METHOTREXATE [Concomitant]
  10. MYCOPHENOLATE MOFETIL [Concomitant]

REACTIONS (5)
  - ACUTE GRAFT VERSUS HOST DISEASE [None]
  - ACUTE MYELOID LEUKAEMIA RECURRENT [None]
  - POST PROCEDURAL COMPLICATION [None]
  - POST PROCEDURAL INFECTION [None]
  - POST PROCEDURAL SEPSIS [None]
